FAERS Safety Report 4731476-8 (Version None)
Quarter: 2005Q3

REPORT INFORMATION
  Report Type: 
  Country: None (occurrence: None)
  Receive Date: 20050801
  Receipt Date: 20050801
  Transmission Date: 20060218
  Serious: Yes (Death, Hospitalization)
  Sender: FDA-Public Use
  Company Number: None

PATIENT
  Sex: Male
  Weight: 90.9 kg

DRUGS (11)
  1. INTERFERON-ALPHA [Suspect]
     Indication: RENAL CELL CARCINOMA STAGE UNSPECIFIED
     Dosage: SEE IMAGES
     Route: 058
     Dates: start: 20030618, end: 20050618
  2. CIPROFLOXACIN HCL [Concomitant]
  3. CORTAZ [Concomitant]
  4. HEPARIN [Concomitant]
  5. HYDROCORTISONE [Concomitant]
  6. KAYEXALATE [Concomitant]
  7. NORMAL SALINE [Concomitant]
  8. PROTONIX [Concomitant]
  9. VANCOMYCIN [Concomitant]
  10. ZOMETA [Concomitant]
  11. ZOSYN [Concomitant]

REACTIONS (6)
  - HYPERCALCAEMIA [None]
  - INFECTION [None]
  - NEUTROPENIA [None]
  - PNEUMONIA [None]
  - REFUSAL OF TREATMENT BY RELATIVE [None]
  - RENAL FAILURE ACUTE [None]
